FAERS Safety Report 7774024-0 (Version None)
Quarter: 2011Q3

REPORT INFORMATION
  Report Type: 
  Country: None (occurrence: None)
  Receive Date: 20110923
  Receipt Date: 20110919
  Transmission Date: 20111222
  Serious: No
  Sender: FDA-Public Use
  Company Number: US-PFIZER INC-2011186282

PATIENT
  Sex: Male
  Weight: 113 kg

DRUGS (11)
  1. OXYCODONE [Concomitant]
     Indication: PAIN
     Dosage: 20 TWICE DAILY
  2. EFFEXOR XR [Suspect]
     Indication: DEPRESSION
  3. VICODIN [Concomitant]
     Indication: PAIN
     Dosage: 70 TWICE DAILY
  4. OXYCONTIN [Concomitant]
     Dosage: 20 TWICE DAILY
  5. NEURONTIN [Suspect]
     Indication: NEURALGIA
     Dosage: 300 MG, 2X/DAY
     Route: 048
     Dates: start: 20110301, end: 20110701
  6. EFFEXOR [Suspect]
     Indication: NEURALGIA
     Dosage: 25 MG, 2X/DAY
     Route: 048
     Dates: start: 20110701, end: 20110701
  7. EFFEXOR [Suspect]
     Dosage: 12.5 MG, 1X/DAY
     Route: 048
     Dates: start: 20110803
  8. SIMVASTATIN [Concomitant]
     Dosage: UNK
  9. EFFEXOR XR [Suspect]
     Indication: NEURALGIA
     Dosage: 75, 1X/DAY
     Route: 048
     Dates: start: 20110412, end: 20110712
  10. LISINOPRIL [Concomitant]
     Dosage: UNK
  11. EFFEXOR [Suspect]
     Dosage: 25 MG, 1X/DAY
     Route: 048
     Dates: start: 20110701, end: 20110802

REACTIONS (11)
  - HEADACHE [None]
  - IRRITABILITY [None]
  - NAUSEA [None]
  - VERTIGO [None]
  - PAIN [None]
  - DRUG WITHDRAWAL SYNDROME [None]
  - THINKING ABNORMAL [None]
  - DRUG INEFFECTIVE [None]
  - DIZZINESS [None]
  - MALAISE [None]
  - FEELING ABNORMAL [None]
